FAERS Safety Report 16692640 (Version 1)
Quarter: 2019Q3

REPORT INFORMATION
  Report Type: Spontaneous
  Country: CL (occurrence: CL)
  Receive Date: 20190812
  Receipt Date: 20190812
  Transmission Date: 20191004
  Serious: Yes (Death)
  Sender: FDA-Public Use
  Company Number: CL-ALLERGAN-1932840US

PATIENT

DRUGS (2)
  1. AZTREONAM. [Concomitant]
     Active Substance: AZTREONAM
  2. CEFTAZIDIME;AVIBACTAM - BP [Suspect]
     Active Substance: AVIBACTAM SODIUM\CEFTAZIDIME
     Indication: BACTERIAL INFECTION
     Dosage: 2.5 G
     Route: 065

REACTIONS (1)
  - Multiple organ dysfunction syndrome [Fatal]
